FAERS Safety Report 15823346 (Version 3)
Quarter: 2019Q2

REPORT INFORMATION
  Report Type: Spontaneous
  Country: US (occurrence: US)
  Receive Date: 20190114
  Receipt Date: 20190516
  Transmission Date: 20190711
  Serious: No
  Sender: FDA-Public Use
  Company Number: US-PFIZER INC-2019017820

PATIENT
  Age: 60 Year
  Sex: Female
  Weight: 49.43 kg

DRUGS (1)
  1. LYRICA [Suspect]
     Active Substance: PREGABALIN
     Indication: NEUROPATHY PERIPHERAL
     Dosage: 150 MG, 3X/DAY
     Route: 048
     Dates: start: 2017

REACTIONS (6)
  - Decubitus ulcer [Unknown]
  - Dysstasia [Unknown]
  - Wrong technique in product usage process [Unknown]
  - Pain [Unknown]
  - Hypoaesthesia [Unknown]
  - Tremor [Unknown]
